FAERS Safety Report 13660527 (Version 1)
Quarter: 2017Q2

REPORT INFORMATION
  Report Type: Spontaneous
  Country: CN (occurrence: CN)
  Receive Date: 20170616
  Receipt Date: 20170616
  Transmission Date: 20170830
  Serious: Yes (Death, Other)
  Sender: FDA-Public Use
  Company Number: CN-009507513-1706CHN005559

PATIENT

DRUGS (1)
  1. CASPOFUNGIN ACETATE. [Suspect]
     Active Substance: CASPOFUNGIN ACETATE
     Indication: LUNG INFECTION

REACTIONS (2)
  - Death [Fatal]
  - Drug ineffective [Unknown]
